FAERS Safety Report 9675053 (Version 3)
Quarter: 2014Q1

REPORT INFORMATION
  Report Type: Report from Study
  Country: US (occurrence: US)
  Receive Date: 20131107
  Receipt Date: 20140114
  Transmission Date: 20141002
  Serious: Yes (Other)
  Sender: FDA-Public Use
  Company Number: US-ROCHE-1271618

PATIENT
  Sex: Female

DRUGS (6)
  1. LUCENTIS [Suspect]
     Indication: MACULAR OEDEMA
     Dosage: LEFT EYE,
     Route: 050
  2. LUCENTIS [Suspect]
     Indication: RETINAL VEIN OCCLUSION
  3. AVASTIN [Suspect]
     Indication: PRODUCT USED FOR UNKNOWN INDICATION
     Dosage: LAST DATE RECEIVED 21/NOV/2013
     Route: 065
  4. SYSTANE ULTRA [Concomitant]
     Dosage: PRN BOTH EYES
     Route: 065
  5. ACETAMINOPHEN/HYDROCODONE [Concomitant]
     Route: 065
  6. ORPHENADRINE [Concomitant]
     Route: 065

REACTIONS (4)
  - Eye discharge [Unknown]
  - Visual acuity reduced [Unknown]
  - Retinal cyst [Unknown]
  - Visual acuity reduced [Unknown]
